FAERS Safety Report 5215833-1 (Version None)
Quarter: 2007Q1

REPORT INFORMATION
  Report Type: 
  Country: None (occurrence: None)
  Receive Date: 20070123
  Receipt Date: 20070111
  Transmission Date: 20070707
  Serious: Yes (Other)
  Sender: FDA-Public Use
  Company Number: US-ROCHE-453227

PATIENT
  Sex: Male

DRUGS (6)
  1. KLONOPIN [Suspect]
     Indication: ANXIETY
     Route: 048
     Dates: start: 19940615
  2. KLONOPIN [Suspect]
     Route: 048
     Dates: start: 19950615
  3. KLONOPIN [Suspect]
     Route: 048
     Dates: start: 20020615, end: 20030615
  4. KLONOPIN [Suspect]
     Dosage: THERAPY STARTED AT 4 MG AND WAS CHANGED TO 6 MG (EXACT DATES NOT PROVIDED).
     Route: 048
     Dates: start: 20030615
  5. KLONOPIN [Suspect]
     Route: 048
     Dates: start: 20050615
  6. KLONOPIN [Suspect]
     Route: 048

REACTIONS (20)
  - AGEUSIA [None]
  - AMNESIA [None]
  - ANOREXIA [None]
  - ANOSMIA [None]
  - AUTOMATISM [None]
  - CONVULSION [None]
  - FEAR [None]
  - HYPOAESTHESIA [None]
  - ILL-DEFINED DISORDER [None]
  - LIMB DISCOMFORT [None]
  - LOSS OF CONSCIOUSNESS [None]
  - MANIA [None]
  - MEMORY IMPAIRMENT [None]
  - MENTAL DISORDER DUE TO A GENERAL MEDICAL CONDITION [None]
  - MIGRAINE [None]
  - PANIC ATTACK [None]
  - POST-TRAUMATIC STRESS DISORDER [None]
  - TRANSIENT ISCHAEMIC ATTACK [None]
  - VOMITING [None]
  - WEIGHT DECREASED [None]
